FAERS Safety Report 19394669 (Version 3)
Quarter: 2021Q3

REPORT INFORMATION
  Report Type: Spontaneous
  Country: US (occurrence: US)
  Receive Date: 20210609
  Receipt Date: 20210706
  Transmission Date: 20211014
  Serious: No
  Sender: FDA-Public Use
  Company Number: NVSC2020US350059

PATIENT
  Age: 1 Year
  Sex: Female

DRUGS (1)
  1. IMATINIB. [Suspect]
     Active Substance: IMATINIB MESYLATE
     Indication: INFANTILE FIBROMATOSIS
     Dosage: UNK
     Route: 048

REACTIONS (2)
  - Drug level decreased [Unknown]
  - Product use in unapproved indication [Unknown]
